FAERS Safety Report 17820114 (Version 2)
Quarter: 2020Q3

REPORT INFORMATION
  Report Type: Spontaneous
  Country: DE (occurrence: DE)
  Receive Date: 20200525
  Receipt Date: 20200713
  Transmission Date: 20201102
  Serious: Yes (Other)
  Sender: FDA-Public Use
  Company Number: DE-ROCHE-2603437

PATIENT
  Sex: Male

DRUGS (3)
  1. POLIVY [Suspect]
     Active Substance: POLATUZUMAB VEDOTIN-PIIQ
     Indication: PRODUCT USED FOR UNKNOWN INDICATION
     Route: 042
  2. NACL [Concomitant]
     Active Substance: SODIUM CHLORIDE
     Dosage: TOGETHER WITH BENDAMUSTINE
  3. BENDAMUSTINE [Concomitant]
     Active Substance: BENDAMUSTINE
     Dosage: TOGETHER WITH NACL

REACTIONS (2)
  - Product administration error [Unknown]
  - Necrosis [Unknown]
